FAERS Safety Report 5370872-5 (Version None)
Quarter: 2007Q2

REPORT INFORMATION
  Report Type: 
  Country: None (occurrence: None)
  Receive Date: 20070626
  Receipt Date: 20070621
  Transmission Date: 20071010
  Serious: Yes (Hospitalization)
  Sender: FDA-Public Use
  Company Number: DEWYE732925MAY07

PATIENT
  Sex: Male

DRUGS (5)
  1. LORAZEPAM [Suspect]
     Dosage: UNKNOWN
     Route: 048
     Dates: start: 20070523
  2. SPALT LIQUA [Suspect]
     Dosage: UNKNOWN
     Route: 048
     Dates: start: 20070523
  3. DIMENHYDRINATE [Suspect]
     Dosage: UNKNOWN
     Route: 048
     Dates: start: 20070523
  4. ALCOHOL [Suspect]
     Dosage: UNKNOWN
     Route: 048
     Dates: start: 20070523
  5. SPALT FUR DIE NACHT [Suspect]
     Dosage: OVERDOSE AMOUNT 1500 MG
     Route: 048
     Dates: start: 20070523

REACTIONS (5)
  - BLOOD CREATINE PHOSPHOKINASE INCREASED [None]
  - COMPARTMENT SYNDROME [None]
  - FATIGUE [None]
  - INTENTIONAL OVERDOSE [None]
  - RENAL FAILURE [None]
